FAERS Safety Report 5066079-1 (Version None)
Quarter: 2006Q3

REPORT INFORMATION
  Report Type: 
  Country: None (occurrence: None)
  Receive Date: 20060726
  Receipt Date: 20060713
  Transmission Date: 20061208
  Serious: Yes (Life-Threatening)
  Sender: FDA-Public Use
  Company Number: 1-14056611

PATIENT
  Age: 14 Year
  Sex: Female

DRUGS (2)
  1. MINOCYCLINE [Suspect]
     Indication: ACNE
     Dosage: BID
     Dates: start: 20060618, end: 20060707
  2. TRILEPTAL [Concomitant]

REACTIONS (2)
  - GRAND MAL CONVULSION [None]
  - RESPIRATORY ARREST [None]
